FAERS Safety Report 7365499-X (Version None)
Quarter: 2011Q1

REPORT INFORMATION
  Report Type: 
  Country: None (occurrence: None)
  Receive Date: 20110322
  Receipt Date: 20100914
  Transmission Date: 20110831
  Serious: Yes (Hospitalization, Other)
  Sender: FDA-Public Use
  Company Number: US-BAYER-201026283NA

PATIENT
  Sex: Female
  Weight: 49.887 kg

DRUGS (6)
  1. YAZ [Suspect]
     Indication: CONTRACEPTION
     Dosage: UNK UNK, QD
     Route: 048
     Dates: start: 20080201, end: 20081101
  2. YASMIN [Suspect]
     Indication: CONTRACEPTION
     Dosage: UNK UNK, QD
     Route: 048
     Dates: start: 20080201, end: 20081101
  3. YASMIN [Suspect]
     Indication: ACNE
  4. YAZ [Suspect]
     Indication: ACNE
  5. OCELLA [Suspect]
     Indication: CONTRACEPTION
     Dosage: UNK UNK, QD
     Route: 048
     Dates: start: 20080201, end: 20081101
  6. OCELLA [Suspect]
     Indication: ACNE

REACTIONS (8)
  - SWELLING [None]
  - POST PROCEDURAL SWELLING [None]
  - OEDEMA PERIPHERAL [None]
  - ANXIETY [None]
  - MUSCLE SPASMS [None]
  - HYPOAESTHESIA [None]
  - PROCEDURAL PAIN [None]
  - DEEP VEIN THROMBOSIS [None]
